FAERS Safety Report 7451068-X (Version None)
Quarter: 2011Q2

REPORT INFORMATION
  Report Type: 
  Country: None (occurrence: None)
  Receive Date: 20110502
  Receipt Date: 20110428
  Transmission Date: 20111010
  Serious: Yes (Death, Other)
  Sender: FDA-Public Use
  Company Number: US-PFIZER INC-2005116935

PATIENT
  Sex: Female

DRUGS (4)
  1. NEURONTIN [Suspect]
     Dosage: 600 MG, 3X/DAY
  2. NEURONTIN [Suspect]
     Indication: PAIN
     Dosage: 300 MG, UNK
     Dates: start: 20000802
  3. NEURONTIN [Suspect]
     Dosage: 800 MG, UNK
     Dates: start: 20011206
  4. NEURONTIN [Suspect]
     Indication: NEURALGIA
     Dosage: 600 MG, UNK
     Dates: start: 20020326

REACTIONS (8)
  - DEPRESSION [None]
  - INTENTIONAL OVERDOSE [None]
  - DRUG DEPENDENCE [None]
  - DECREASED APPETITE [None]
  - COMPLETED SUICIDE [None]
  - NEURALGIA [None]
  - FEAR [None]
  - DRUG INEFFECTIVE [None]
